FAERS Safety Report 6982622-7 (Version None)
Quarter: 2010Q3

REPORT INFORMATION
  Report Type: 
  Country: None (occurrence: None)
  Receive Date: 20100914
  Receipt Date: 20100407
  Transmission Date: 20110219
  Serious: Yes (Other)
  Sender: FDA-Public Use
  Company Number: US-PFIZER INC-2009309806

PATIENT
  Sex: Male
  Weight: 73 kg

DRUGS (8)
  1. LYRICA [Suspect]
     Indication: ANXIETY
     Dosage: 50 MG, 2X/DAY
     Route: 048
  2. LYRICA [Suspect]
     Dosage: 75 MG, 2X/DAY
     Route: 048
     Dates: start: 20100201
  3. BUSPAR [Concomitant]
     Indication: ANXIETY
     Dosage: 60 MG, 1X/DAY
     Route: 048
  4. BUSPAR [Concomitant]
     Dosage: UNK
  5. SYNTHROID [Concomitant]
     Indication: HYPOTHYROIDISM
     Dosage: 60 MG, 1X/DAY
     Route: 048
  6. SYNTHROID [Concomitant]
     Dosage: UNK
  7. PROSCAR [Concomitant]
     Indication: PROSTATIC DISORDER
     Dosage: 2.5 MG, 1X/DAY
     Route: 048
  8. PROSCAR [Concomitant]
     Dosage: UNK

REACTIONS (3)
  - DIPLOPIA [None]
  - FEELING OF RELAXATION [None]
  - VISUAL IMPAIRMENT [None]
